FAERS Safety Report 4986946-4 (Version None)
Quarter: 2006Q2

REPORT INFORMATION
  Report Type: 
  Country: None (occurrence: None)
  Receive Date: 20060427
  Receipt Date: 20060427
  Transmission Date: 20061013
  Serious: No
  Sender: FDA-Public Use
  Company Number: None

PATIENT
  Sex: Male

DRUGS (1)
  1. FENTANYL [Suspect]
     Dosage: 50 MCG/H ONE PATCH Q 48 H
     Dates: start: 20060308, end: 20060404

REACTIONS (2)
  - RASH [None]
  - SKIN IRRITATION [None]
